FAERS Safety Report 14678012 (Version 1)
Quarter: 2018Q1

REPORT INFORMATION
  Report Type: Spontaneous
  Country: US (occurrence: US)
  Receive Date: 20180326
  Receipt Date: 20180326
  Transmission Date: 20180509
  Serious: No
  Sender: FDA-Public Use
  Company Number: US-TEIKOKU PHARMA USA-TPU2018-00081

PATIENT
  Sex: Female
  Weight: 122.58 kg

DRUGS (4)
  1. LIDOCAINE PATCH [Suspect]
     Active Substance: LIDOCAINE
     Indication: BACK PAIN
     Dates: start: 2014, end: 2016
  2. MORPHINE [Concomitant]
     Active Substance: MORPHINE
     Indication: BACK PAIN
     Dates: start: 2013, end: 2015
  3. HYDROCODONE BITARTRATE AND ACETAMINOPHEN [Concomitant]
     Active Substance: ACETAMINOPHEN\HYDROCODONE BITARTRATE
     Indication: BACK PAIN
     Dosage: 10/500 MG TABLET?(CHANGED TO 10/325 MG TABLET IN 2013)
     Dates: start: 2012, end: 2013
  4. HYDROCODONE BITARTRATE AND ACETAMINOPHEN [Concomitant]
     Active Substance: ACETAMINOPHEN\HYDROCODONE BITARTRATE
     Dosage: 10/325 MG TABLET?6 TABLETS PER DAY, DOWN TO 4 TABLETS PER DAY
     Dates: start: 2013, end: 201712

REACTIONS (1)
  - Memory impairment [Not Recovered/Not Resolved]
